FAERS Safety Report 7917635-1 (Version None)
Quarter: 2011Q4

REPORT INFORMATION
  Report Type: 
  Country: None (occurrence: None)
  Receive Date: 20111116
  Receipt Date: 20111103
  Transmission Date: 20120403
  Serious: Yes (Hospitalization)
  Sender: FDA-Public Use
  Company Number: SE-ELI_LILLY_AND_COMPANY-SE201111002026

PATIENT
  Age: 77 Year
  Sex: Female

DRUGS (14)
  1. ZYPREXA [Suspect]
     Indication: MAJOR DEPRESSION
     Dosage: UNK
  2. LAMICTAL [Concomitant]
     Dosage: 100 MG, UNK
  3. LEVOTHYROXINE SODIUM [Concomitant]
     Dosage: 75 MG, UNK
  4. LERGIGAN [Concomitant]
     Dosage: 5 MG, UNK
  5. LAKTIPEX [Concomitant]
     Dosage: 10 G, UNK
  6. ALVEDON [Concomitant]
     Dosage: 500 MG, UNK
  7. ESTRADIOL [Concomitant]
     Dosage: 1 MG, UNK
  8. VALPROIC ACID [Concomitant]
     Dosage: 100 MG, UNK
  9. SEROQUEL [Concomitant]
     Dosage: 25 MG, UNK
  10. ORALOVITE [Concomitant]
  11. DULCOLAX [Concomitant]
     Dosage: 10 MG, UNK
  12. CALCIUM CARBONATE [Concomitant]
  13. XERODENT [Concomitant]
  14. IMOVANE [Concomitant]
     Dosage: 7.5 MG, UNK

REACTIONS (1)
  - RENAL FAILURE ACUTE [None]
